FAERS Safety Report 15626313 (Version 1)
Quarter: 2018Q4

REPORT INFORMATION
  Report Type: Spontaneous
  Country: US (occurrence: US)
  Receive Date: 20181116
  Receipt Date: 20181116
  Transmission Date: 20190205
  Serious: Yes (Life-Threatening, Hospitalization, Other)
  Sender: FDA-Public Use
  Company Number: None

PATIENT
  Age: 62 Year
  Sex: Male
  Weight: 90 kg

DRUGS (1)
  1. MARPLAN [Suspect]
     Active Substance: ISOCARBOXAZID
     Indication: DEPRESSION
     Route: 048
     Dates: start: 20070707, end: 20180901

REACTIONS (3)
  - Homicidal ideation [None]
  - Suicidal ideation [None]
  - Product availability issue [None]

NARRATIVE: CASE EVENT DATE: 20180901
